FAERS Safety Report 25191653 (Version 3)
Quarter: 2025Q2

REPORT INFORMATION
  Report Type: Spontaneous
  Country: DE (occurrence: DE)
  Receive Date: 20250414
  Receipt Date: 20250606
  Transmission Date: 20250717
  Serious: Yes (Hospitalization, Other)
  Sender: TORRENT PHARMA INC.
  Company Number: DE-MLMSERVICE-20250331-PI458513-00190-1

PATIENT
  Age: 46 Year
  Sex: Male

DRUGS (2)
  1. LAMOTRIGINE [Interacting]
     Active Substance: LAMOTRIGINE
     Indication: Idiopathic generalised epilepsy
     Dosage: TARGET DOSE OF TWICE 100 MG WAS REACHED
     Route: 065
     Dates: end: 2017
  2. METAMIZOLE [Interacting]
     Active Substance: METAMIZOLE
     Indication: Procedural pain
     Dosage: 1000-1000-1000 MG FOR 1 WEEK
     Route: 065
     Dates: start: 2024, end: 2024

REACTIONS (2)
  - Generalised tonic-clonic seizure [Recovered/Resolved]
  - Drug interaction [Recovered/Resolved]

NARRATIVE: CASE EVENT DATE: 20240101
